FAERS Safety Report 6141721-2 (Version None)
Quarter: 2009Q2

REPORT INFORMATION
  Report Type: 
  Country: None (occurrence: None)
  Receive Date: 20090402
  Receipt Date: 20090326
  Transmission Date: 20091009
  Serious: Yes (Other)
  Sender: FDA-Public Use
  Company Number: US-ELI_LILLY_AND_COMPANY-US200903006949

PATIENT
  Sex: Female

DRUGS (8)
  1. HUMULIN N [Suspect]
     Dosage: 22 U, EACH MORNING
  2. HUMULIN N [Suspect]
     Dosage: 2 U, DAILY (1/D)
  3. HUMULIN N [Suspect]
     Dosage: 8 U, EACH EVENING
  4. HUMULIN N [Suspect]
     Dosage: 12 U, EACH EVENING
  5. HUMULIN R [Suspect]
  6. HUMULIN L [Suspect]
  7. LOTREL [Concomitant]
     Indication: HYPERTENSION
  8. SYNTHROID [Concomitant]

REACTIONS (8)
  - BLOOD GLUCOSE DECREASED [None]
  - BLOOD GLUCOSE FLUCTUATION [None]
  - DIABETES MELLITUS INADEQUATE CONTROL [None]
  - DIABETIC RETINOPATHY [None]
  - EYE HAEMORRHAGE [None]
  - HYPERTENSION [None]
  - HYPOGLYCAEMIC UNCONSCIOUSNESS [None]
  - TREMOR [None]
